FAERS Safety Report 20686428 (Version 2)
Quarter: 2022Q2

REPORT INFORMATION
  Report Type: Spontaneous
  Country: US (occurrence: US)
  Receive Date: 20220407
  Receipt Date: 20220413
  Transmission Date: 20220721
  Serious: Yes (Other)
  Sender: FDA-Public Use
  Company Number: US-PFIZER INC-202200532205

PATIENT
  Age: 91 Year
  Sex: Female
  Weight: 47.63 kg

DRUGS (2)
  1. IBRANCE [Suspect]
     Active Substance: PALBOCICLIB
     Indication: Sweat gland tumour
     Dosage: UNK
     Dates: start: 2020, end: 20220119
  2. IBRANCE [Suspect]
     Active Substance: PALBOCICLIB
     Indication: Eccrine carcinoma
     Dosage: UNK
     Dates: start: 20220405

REACTIONS (13)
  - Hepatic embolisation [Unknown]
  - Fatigue [Unknown]
  - Dry mouth [Unknown]
  - Burning sensation [Unknown]
  - Insomnia [Unknown]
  - Feeling cold [Unknown]
  - Chills [Unknown]
  - White blood cell count abnormal [Unknown]
  - Pyrexia [Unknown]
  - Hypoacusis [Unknown]
  - Irritable bowel syndrome [Unknown]
  - Malaise [Unknown]
  - Hearing aid user [Unknown]

NARRATIVE: CASE EVENT DATE: 20220401
